FAERS Safety Report 16526132 (Version 2)
Quarter: 2019Q3

REPORT INFORMATION
  Report Type: Report from Study
  Country: None (occurrence: US)
  Receive Date: 20190703
  Receipt Date: 20190726
  Transmission Date: 20191004
  Serious: Yes (Hospitalization, Other)
  Sender: FDA-Public Use
  Company Number: US-ABBVIE-19K-163-2815786-00

PATIENT
  Age: 56 Year
  Sex: Male
  Weight: 117.13 kg

DRUGS (3)
  1. CODEINE [Concomitant]
     Active Substance: CODEINE
     Indication: PAIN
  2. HUMIRA [Suspect]
     Active Substance: ADALIMUMAB
     Route: 058
     Dates: start: 2019
  3. HUMIRA [Suspect]
     Active Substance: ADALIMUMAB
     Indication: ANKYLOSING SPONDYLITIS
     Route: 058
     Dates: start: 20181023, end: 20190610

REACTIONS (5)
  - Hip arthroplasty [Recovered/Resolved]
  - Joint range of motion decreased [Unknown]
  - Gait disturbance [Unknown]
  - Gait inability [Unknown]
  - Exostosis [Unknown]

NARRATIVE: CASE EVENT DATE: 20190610
